FAERS Safety Report 5006007-8 (Version None)
Quarter: 2006Q2

REPORT INFORMATION
  Report Type: 
  Country: None (occurrence: None)
  Receive Date: 20060518
  Receipt Date: 20060509
  Transmission Date: 20061013
  Serious: Yes (Hospitalization, Other)
  Sender: FDA-Public Use
  Company Number: ZA-ABBOTT-06P-143-0332815-00

PATIENT
  Age: 46 Year
  Sex: Female

DRUGS (6)
  1. AKINETON [Suspect]
     Indication: MEDICATION ERROR
     Route: 048
     Dates: start: 20060505, end: 20060505
  2. CITALOPRAM HYDROBROMIDE [Concomitant]
     Indication: ANTIDEPRESSANT THERAPY
     Route: 065
  3. DISOPYRAMIDE [Concomitant]
     Indication: VENTRICULAR EXTRASYSTOLES
  4. DISOPYRAMIDE [Concomitant]
     Indication: ARRHYTHMIA SUPRAVENTRICULAR
  5. ESTRADIOL [Concomitant]
     Indication: HORMONE REPLACEMENT THERAPY
     Route: 065
  6. ESTRADIOL [Concomitant]
     Indication: BLOOD OESTROGEN

REACTIONS (7)
  - CONFUSIONAL STATE [None]
  - CONVULSION [None]
  - DRY MOUTH [None]
  - FEELING ABNORMAL [None]
  - HEADACHE [None]
  - MEDICATION ERROR [None]
  - NEUROLOGICAL SYMPTOM [None]
